FAERS Safety Report 9008918 (Version 5)
Quarter: 2014Q1

REPORT INFORMATION
  Report Type: Spontaneous
  Country: CA (occurrence: CA)
  Receive Date: 20130111
  Receipt Date: 20140121
  Transmission Date: 20141002
  Serious: Yes (Disabling, Other)
  Sender: FDA-Public Use
  Company Number: CA-PFIZER INC-2013012558

PATIENT
  Age: 60 Year
  Sex: Female
  Weight: 100 kg

DRUGS (3)
  1. TENORMIN [Suspect]
     Dosage: 25 MG, DAILY (0.5 DF, DAILY)
     Route: 048
     Dates: start: 2011
  2. RAMIPRIL [Suspect]
     Dosage: 5 MG, 1X/DAY
     Route: 048
  3. CRESTOR [Suspect]
     Indication: BLOOD CHOLESTEROL INCREASED
     Dosage: 5 MG, DAILY (0.5 DF, DAILY)
     Route: 048
     Dates: end: 2012

REACTIONS (7)
  - Myalgia [Recovered/Resolved]
  - Arthralgia [Recovered/Resolved]
  - Quality of life decreased [Recovered/Resolved]
  - Fatigue [Recovered/Resolved]
  - Depression [Recovered/Resolved]
  - Amnesia [Recovered/Resolved]
  - Asthenia [Recovered/Resolved]
